FAERS Safety Report 19156692 (Version 1)
Quarter: 2021Q2

REPORT INFORMATION
  Report Type: Report from Study
  Country: US (occurrence: US)
  Receive Date: 20210420
  Receipt Date: 20210420
  Transmission Date: 20210717
  Serious: Yes (Hospitalization, Other)
  Sender: FDA-Public Use
  Company Number: US-CIPLA LTD.-2021US02802

PATIENT

DRUGS (6)
  1. DARATUMUMAB [Suspect]
     Active Substance: DARATUMUMAB
     Dosage: 1800 MILLIGRAM EVERY OTHER WEEK FOR 8 DOSES
     Route: 058
     Dates: start: 2019
  2. BORTEZOMIB. [Suspect]
     Active Substance: BORTEZOMIB
     Indication: PRIMARY AMYLOIDOSIS
     Dosage: 1.3 MILLIGRAM/SQ. METER ONCE WEEKLY
     Route: 058
     Dates: start: 201903
  3. DEXAMETHASONE. [Suspect]
     Active Substance: DEXAMETHASONE
     Indication: PRIMARY AMYLOIDOSIS
     Dosage: 40 MILLIGRAM ONCE WEEKLY
     Route: 065
     Dates: start: 201903
  4. CYCLOPHOSPHAMIDE. [Suspect]
     Active Substance: CYCLOPHOSPHAMIDE
     Indication: PRIMARY AMYLOIDOSIS
     Dosage: 300 MILLIGRAM/SQ. METER ONCE WEEKLY
     Route: 048
     Dates: start: 201903, end: 2019
  5. DARATUMUMAB [Suspect]
     Active Substance: DARATUMUMAB
     Indication: PRIMARY AMYLOIDOSIS
     Dosage: 1800 MILLIGRAM ONCE WEEKLY FOR 8 DOSES
     Route: 058
     Dates: start: 201903
  6. DARATUMUMAB [Suspect]
     Active Substance: DARATUMUMAB
     Dosage: 1800 MILLIGRAM MONTHLY
     Route: 058
     Dates: start: 2019

REACTIONS (3)
  - Hyponatraemia [Unknown]
  - Fluid overload [Unknown]
  - Adverse event [Unknown]

NARRATIVE: CASE EVENT DATE: 2019
